FAERS Safety Report 17483846 (Version 1)
Quarter: 2020Q1

REPORT INFORMATION
  Report Type: Spontaneous
  Country: US (occurrence: US)
  Receive Date: 20200301
  Receipt Date: 20200301
  Transmission Date: 20200409
  Serious: Yes (Other)
  Sender: FDA-Public Use
  Company Number: None

PATIENT
  Age: 59 Year
  Sex: Female
  Weight: 71.1 kg

DRUGS (2)
  1. VENLAFAXINE HYDROCHLORIDE. [Suspect]
     Active Substance: VENLAFAXINE HYDROCHLORIDE
     Indication: ANXIETY
     Dosage: ?          QUANTITY:3 CAPSULE(S);OTHER FREQUENCY:2 X 37.5MG;?
     Route: 048
  2. VENLAFAXINE HYDROCHLORIDE. [Suspect]
     Active Substance: VENLAFAXINE HYDROCHLORIDE
     Indication: DEPRESSION
     Dosage: ?          QUANTITY:3 CAPSULE(S);OTHER FREQUENCY:2 X 37.5MG;?
     Route: 048

REACTIONS (44)
  - Gait disturbance [None]
  - Electric shock [None]
  - Bruxism [None]
  - Nausea [None]
  - Cough [None]
  - Type 2 diabetes mellitus [None]
  - Apathy [None]
  - Dizziness [None]
  - Tinnitus [None]
  - Hypersomnia [None]
  - Skin discolouration [None]
  - Movement disorder [None]
  - Lipids increased [None]
  - Mania [None]
  - Serum ferritin decreased [None]
  - Cataract [None]
  - Dyspnoea [None]
  - Mental impairment [None]
  - Depression [None]
  - Hyperhidrosis [None]
  - Neoplasm skin [None]
  - Coordination abnormal [None]
  - Confusional state [None]
  - Hallucination [None]
  - Vision blurred [None]
  - Peripheral swelling [None]
  - Haemorrhage [None]
  - Loss of employment [None]
  - Mood swings [None]
  - Fall [None]
  - Fatigue [None]
  - Condition aggravated [None]
  - Insomnia [None]
  - Non-alcoholic steatohepatitis [None]
  - Impaired healing [None]
  - Sleep apnoea syndrome [None]
  - Withdrawal syndrome [None]
  - Muscle spasms [None]
  - Speech disorder [None]
  - Loss of personal independence in daily activities [None]
  - Vomiting [None]
  - Memory impairment [None]
  - Irritable bowel syndrome [None]
  - Anorgasmia [None]

NARRATIVE: CASE EVENT DATE: 20181222
